FAERS Safety Report 9255493 (Version 1)
Quarter: 2013Q2

REPORT INFORMATION
  Report Type: Spontaneous
  Country: US (occurrence: None)
  Receive Date: 20130423
  Receipt Date: 20130423
  Transmission Date: 20140414
  Serious: No
  Sender: FDA-Public Use
  Company Number: None

PATIENT
  Age: 14 Year
  Sex: Female
  Weight: 126.1 kg

DRUGS (2)
  1. OLANZAPINE [Suspect]
     Indication: AGITATION
     Dosage: 10MG  Q6H  PRN  PO
     Route: 048
     Dates: start: 20130420, end: 20130420
  2. OLANZAPINE [Suspect]
     Indication: ANXIETY
     Dosage: 10MG  Q6H  PRN  PO
     Route: 048
     Dates: start: 20130420, end: 20130420

REACTIONS (2)
  - Pharyngeal oedema [None]
  - Reaction to drug excipients [None]
